FAERS Safety Report 20159589 (Version 1)
Quarter: 2021Q4

REPORT INFORMATION
  Report Type: Spontaneous
  Country: IN (occurrence: IN)
  Receive Date: 20211208
  Receipt Date: 20211208
  Transmission Date: 20220303
  Serious: Yes (Hospitalization, Other)
  Sender: FDA-Public Use
  Company Number: IN-Indoco-000255

PATIENT
  Age: 73 Year
  Sex: Female

DRUGS (1)
  1. BRIMONIDINE [Suspect]
     Active Substance: BRIMONIDINE TARTRATE
     Indication: Exfoliation glaucoma
     Dosage: 0.2%, TWICE DAILY
     Route: 061

REACTIONS (2)
  - Hypersensitivity [Not Recovered/Not Resolved]
  - Choroidal haemorrhage [Not Recovered/Not Resolved]
